FAERS Safety Report 7248706-3 (Version None)
Quarter: 2011Q1

REPORT INFORMATION
  Report Type: 
  Country: None (occurrence: None)
  Receive Date: 20110119
  Receipt Date: 20110119
  Transmission Date: 20110831
  Serious: No
  Sender: FDA-Public Use
  Company Number: None

PATIENT
  Age: 34 Year
  Sex: Female
  Weight: 54.4316 kg

DRUGS (2)
  1. KENALOG [Suspect]
     Indication: UPPER RESPIRATORY TRACT INFECTION
     Dosage: 1 IM
     Route: 030
     Dates: start: 20101001, end: 20101001
  2. KENALOG [Suspect]
     Indication: UPPER RESPIRATORY TRACT INFECTION
     Dosage: 1 IM
     Route: 030
     Dates: start: 20100501, end: 20100501

REACTIONS (4)
  - ARTHRALGIA [None]
  - CONTUSION [None]
  - INJECTION SITE ATROPHY [None]
  - DEFORMITY [None]
